FAERS Safety Report 5702457-2 (Version None)
Quarter: 2008Q2

REPORT INFORMATION
  Report Type: 
  Country: None (occurrence: None)
  Receive Date: 20080411
  Receipt Date: 20080407
  Transmission Date: 20081010
  Serious: Yes (Hospitalization)
  Sender: FDA-Public Use
  Company Number: FR-BRISTOL-MYERS SQUIBB COMPANY-14140255

PATIENT
  Age: 73 Year
  Sex: Female

DRUGS (4)
  1. SINEMET [Suspect]
     Indication: PARKINSON'S DISEASE
     Dosage: 1 DOSAGE FORM = 100MG/10MG AT 6 TABS/DAY. CARBIDOPA+LEVADOPA WAS DECREASED TO 4X100MG/DAY.
     Dates: end: 20071227
  2. TRIVASTAL [Suspect]
     Dates: end: 20071219
  3. ROCEPHIN [Concomitant]
     Indication: URINARY TRACT INFECTION
  4. SERTRALINE [Concomitant]

REACTIONS (4)
  - CONFUSIONAL STATE [None]
  - HYPONATRAEMIA [None]
  - PLEURAL EFFUSION [None]
  - URINARY TRACT INFECTION [None]
